FAERS Safety Report 17509628 (Version 3)
Quarter: 2021Q1

REPORT INFORMATION
  Report Type: Spontaneous
  Country: JP (occurrence: JP)
  Receive Date: 20200306
  Receipt Date: 20210212
  Transmission Date: 20210419
  Serious: Yes (Hospitalization, Other)
  Sender: FDA-Public Use
  Company Number: JP-ASTRAZENECA-2019SE77903

PATIENT
  Age: 62 Year
  Sex: Female
  Weight: 74 kg

DRUGS (15)
  1. LYNPARZA [Interacting]
     Active Substance: OLAPARIB
     Indication: OVARIAN CANCER
     Dosage: RESUMED AT A REDUCED DOSE AFTER THE EVENING 150 MG
     Route: 048
     Dates: start: 20190522, end: 20190607
  2. DAIKENCHUTO [Concomitant]
     Active Substance: HERBALS
     Indication: OVARIAN CANCER
     Route: 048
     Dates: start: 20190415
  3. REQUIP [Concomitant]
     Active Substance: ROPINIROLE HYDROCHLORIDE
     Indication: PARKINSON^S DISEASE
     Route: 048
  4. METFORMIN HYDROCHLORIDE:MT [Concomitant]
     Active Substance: METFORMIN HYDROCHLORIDE
     Indication: TYPE 2 DIABETES MELLITUS
     Route: 048
  5. REBAMIPIDE [Concomitant]
     Active Substance: REBAMIPIDE
     Indication: OVARIAN CANCER
     Route: 048
     Dates: start: 20190206
  6. SYMMETREL [Concomitant]
     Active Substance: AMANTADINE HYDROCHLORIDE
     Indication: PARKINSON^S DISEASE
     Route: 048
  7. GLACTIV [Concomitant]
     Active Substance: SITAGLIPTIN
     Indication: TYPE 2 DIABETES MELLITUS
     Route: 048
  8. LYNPARZA [Interacting]
     Active Substance: OLAPARIB
     Indication: OVARIAN CANCER
     Dosage: IN THE MORNING ONLY 300 MG
     Route: 048
     Dates: start: 20190521, end: 20190521
  9. LYNPARZA [Suspect]
     Active Substance: OLAPARIB
     Indication: OVARIAN CANCER
     Dosage: 300 MG TWO TIMES A DAY
     Route: 048
     Dates: start: 20190518, end: 20190518
  10. METHYCOBAL [Concomitant]
     Active Substance: METHYLCOBALAMIN
     Indication: OVARIAN CANCER
     Route: 048
     Dates: start: 20190206
  11. GOSHAJINKIGAN [Concomitant]
     Active Substance: HERBALS
     Indication: OVARIAN CANCER
     Route: 048
     Dates: start: 20190206
  12. FP?OD [Interacting]
     Active Substance: SELEGILINE HYDROCHLORIDE
     Indication: PARKINSON^S DISEASE
     Route: 048
     Dates: end: 201906
  13. LOXOPROFEN [Concomitant]
     Active Substance: LOXOPROFEN
     Indication: OVARIAN CANCER
     Route: 048
     Dates: start: 20190206
  14. MENESIT [Concomitant]
     Active Substance: CARBIDOPA\LEVODOPA
     Indication: PARKINSON^S DISEASE
     Route: 048
  15. CANDESARTAN. [Concomitant]
     Active Substance: CANDESARTAN
     Indication: HYPERTENSION
     Route: 048

REACTIONS (3)
  - Hypertension [Recovered/Resolved]
  - Parkinson^s disease [Recovering/Resolving]
  - Inhibitory drug interaction [Unknown]

NARRATIVE: CASE EVENT DATE: 20190518
